FAERS Safety Report 8453569-4 (Version None)
Quarter: 2012Q2

REPORT INFORMATION
  Report Type: 
  Country: None (occurrence: None)
  Receive Date: 20120323
  Receipt Date: 20110919
  Transmission Date: 20120825
  Serious: Yes (Hospitalization)
  Sender: FDA-Public Use
  Company Number: 163-21880-11092469

PATIENT
  Age: 64 Year
  Sex: Male

DRUGS (9)
  1. OMEPRAZOLE [Concomitant]
  2. COLACE DOCUSATE SODIUM) [Concomitant]
  3. ARICEPT [Concomitant]
  4. MARINOL [Concomitant]
  5. ASPIRIN [Concomitant]
  6. PERCOCET [Concomitant]
  7. PHENERGAN HCL [Concomitant]
  8. LENALIDOMIDE [Suspect]
     Indication: MULTIPLE MYELOMA
     Dosage: 25 MG, PO
     Route: 048
     Dates: start: 20110101, end: 20110101
  9. MS CONTIN [Concomitant]

REACTIONS (2)
  - SYNCOPE [None]
  - CHEST PAIN [None]
